FAERS Safety Report 4993264-7 (Version None)
Quarter: 2006Q1

REPORT INFORMATION
  Report Type: 
  Country: None (occurrence: None)
  Receive Date: 20060314
  Receipt Date: 20050808
  Transmission Date: 20060701
  Serious: Yes (Other)
  Sender: FDA-Public Use
  Company Number: 200511641BCC

PATIENT
  Sex: Female

DRUGS (1)
  1. ALEVE [Suspect]
     Indication: BACK PAIN
     Dosage: ORAL
     Route: 048
     Dates: start: 20050417

REACTIONS (5)
  - COUGH [None]
  - HYPERSENSITIVITY [None]
  - MIGRAINE [None]
  - THROAT TIGHTNESS [None]
  - URTICARIA [None]
